FAERS Safety Report 6706367-3 (Version None)
Quarter: 2010Q2

REPORT INFORMATION
  Report Type: 
  Country: None (occurrence: None)
  Receive Date: 20100503
  Receipt Date: 20100426
  Transmission Date: 20101027
  Serious: Yes (Hospitalization)
  Sender: FDA-Public Use
  Company Number: TR-ELI_LILLY_AND_COMPANY-TR201004007109

PATIENT

DRUGS (6)
  1. HUMULIN R [Suspect]
     Indication: BLOOD GLUCOSE ABNORMAL
     Dosage: 10 IU, 3/D
     Route: 064
     Dates: start: 20091203
  2. HUMULIN N [Suspect]
     Indication: BLOOD GLUCOSE ABNORMAL
     Dosage: 10 U, DAILY (1/D)
     Route: 064
     Dates: start: 20091203
  3. LEVOTHYROXINE SODIUM [Concomitant]
     Indication: HYPOTHYROIDISM
     Dosage: 1 D/F, QOD
     Route: 064
  4. LEVOTHYROXINE SODIUM [Concomitant]
     Dosage: 0.5 D/F, QOD
     Route: 064
  5. GYNO-FERRO SANOL [Concomitant]
     Indication: SUPPLEMENTATION THERAPY
     Route: 064
  6. ELEVIT PRONATAL [Concomitant]
     Indication: VITAMIN SUPPLEMENTATION
     Route: 064

REACTIONS (3)
  - DRUG EXPOSURE DURING PREGNANCY [None]
  - HYPOGLYCAEMIA [None]
  - TRANSIENT TACHYPNOEA OF THE NEWBORN [None]
